FAERS Safety Report 7539057-8 (Version None)
Quarter: 2011Q2

REPORT INFORMATION
  Report Type: 
  Country: None (occurrence: None)
  Receive Date: 20110610
  Receipt Date: 20010406
  Transmission Date: 20111010
  Serious: Yes (Hospitalization)
  Sender: FDA-Public Use
  Company Number: PHBS2001JP03679

PATIENT
  Sex: Female
  Weight: 46 kg

DRUGS (1)
  1. LOCHOLEST [Suspect]
     Indication: HYPERCHOLESTEROLAEMIA
     Dosage: 20 MG, QD
     Route: 048
     Dates: start: 20000626, end: 20000630

REACTIONS (1)
  - ABDOMINAL PAIN [None]
